FAERS Safety Report 18717540 (Version 2)
Quarter: 2021Q1

REPORT INFORMATION
  Report Type: Spontaneous
  Country: DE (occurrence: DE)
  Receive Date: 20210108
  Receipt Date: 20210122
  Transmission Date: 20210419
  Serious: Yes (Other)
  Sender: FDA-Public Use
  Company Number: DE-NOVOPROD-778520

PATIENT
  Age: 36 Year
  Sex: Male
  Weight: 79 kg

DRUGS (3)
  1. NOVORAPID [Suspect]
     Active Substance: INSULIN ASPART
     Dosage: REPLACEMENT MODEL
     Route: 058
     Dates: start: 20201231
  2. NOVORAPID [Suspect]
     Active Substance: INSULIN ASPART
     Dosage: CARTRIDGE CHANGE, 29 BASAL, 15 BOLUS
     Route: 058
     Dates: start: 20201102, end: 20201103
  3. NOVORAPID [Suspect]
     Active Substance: INSULIN ASPART
     Indication: TYPE 1 DIABETES MELLITUS
     Dosage: UNK
     Route: 058
     Dates: start: 20201102

REACTIONS (2)
  - Product leakage [Recovered/Resolved]
  - Diabetic ketoacidosis [Recovered/Resolved]

NARRATIVE: CASE EVENT DATE: 202011
